FAERS Safety Report 16651155 (Version 1)
Quarter: 2019Q3

REPORT INFORMATION
  Report Type: Spontaneous
  Country: BR (occurrence: BR)
  Receive Date: 20190731
  Receipt Date: 20190731
  Transmission Date: 20191004
  Serious: Yes (Other)
  Sender: FDA-Public Use
  Company Number: BR-DSJP-DSE-2019-124773

PATIENT

DRUGS (10)
  1. GLIFAGE [Interacting]
     Active Substance: METFORMIN HYDROCHLORIDE
     Indication: DIABETES PROPHYLAXIS
     Dosage: 500 MG
     Route: 065
  2. SOMALGIN [Suspect]
     Active Substance: ASPIRIN\DIHYDROXYALUMINUM AMINOACETATE ANHYDROUS\MAGNESIUM CARBONATE
     Indication: ARTERIAL OCCLUSIVE DISEASE
     Dosage: 100 MG, QD
     Route: 048
     Dates: start: 2019
  3. BENICAR [Interacting]
     Active Substance: OLMESARTAN MEDOXOMIL
     Dosage: 40 MG, QD
     Route: 048
     Dates: start: 2019, end: 2019
  4. ROSUVASTATIN. [Interacting]
     Active Substance: ROSUVASTATIN
     Indication: BLOOD CHOLESTEROL INCREASED
     Dosage: 20 MG, QD
     Route: 048
     Dates: start: 2019
  5. BENICAR HCT [Interacting]
     Active Substance: HYDROCHLOROTHIAZIDE\OLMESARTAN MEDOXOMIL
     Dosage: UNK, QD
     Dates: start: 201907
  6. BENICAR [Suspect]
     Active Substance: OLMESARTAN MEDOXOMIL
     Indication: HYPERTENSION
     Dosage: 20 MG, QD
     Route: 048
     Dates: start: 2019, end: 2019
  7. FLUIR [Interacting]
     Active Substance: FORMOTEROL FUMARATE
     Indication: LUNG DISORDER
     Dosage: 12 UG, BID
     Dates: start: 2015
  8. BENICAR [Interacting]
     Active Substance: OLMESARTAN MEDOXOMIL
     Dosage: 20 MG, QOD
     Route: 048
     Dates: start: 2019, end: 201907
  9. BENICAR HCT [Interacting]
     Active Substance: HYDROCHLOROTHIAZIDE\OLMESARTAN MEDOXOMIL
     Indication: HYPERTENSION
     Dosage: 20/12.5 MG, QOD
     Route: 048
     Dates: start: 2019, end: 201907
  10. ACETYLCYSTEINE. [Interacting]
     Active Substance: ACETYLCYSTEINE
     Indication: LUNG DISORDER
     Dosage: UNK, AS NEEDED
     Route: 065

REACTIONS (7)
  - Alcohol interaction [Unknown]
  - Vertebral artery occlusion [Unknown]
  - Blood pressure inadequately controlled [Recovering/Resolving]
  - Off label use [Recovered/Resolved]
  - Intentional product misuse [Not Recovered/Not Resolved]
  - Hypotension [Unknown]
  - Intentional product use issue [Recovered/Resolved]

NARRATIVE: CASE EVENT DATE: 2019
